FAERS Safety Report 26165293 (Version 1)
Quarter: 2025Q4

REPORT INFORMATION
  Report Type: Spontaneous
  Country: US (occurrence: US)
  Receive Date: 20251216
  Receipt Date: 20251216
  Transmission Date: 20260117
  Serious: Yes (Hospitalization, Other)
  Sender: GALDERMA
  Company Number: US-GALDERMA-US2025026449

PATIENT

DRUGS (1)
  1. NEMLUVIO [Suspect]
     Active Substance: NEMOLIZUMAB-ILTO
     Indication: Dermatitis atopic
     Route: 058

REACTIONS (4)
  - Syncope [Unknown]
  - Hypotension [Unknown]
  - Erythema [Unknown]
  - Pruritus [Unknown]
